FAERS Safety Report 8168029-8 (Version None)
Quarter: 2012Q1

REPORT INFORMATION
  Report Type: 
  Country: None (occurrence: None)
  Receive Date: 20120227
  Receipt Date: 20120215
  Transmission Date: 20120608
  Serious: Yes (Other)
  Sender: FDA-Public Use
  Company Number: PHHY2012CA010506

PATIENT
  Sex: Female

DRUGS (1)
  1. SANDOSTATIN LAR [Suspect]
     Indication: ANGIODYSPLASIA
     Dosage: 10 MG, QMO
     Route: 030
     Dates: start: 20120131

REACTIONS (8)
  - DYSPNOEA [None]
  - QUALITY OF LIFE DECREASED [None]
  - HEADACHE [None]
  - HUNGER [None]
  - BLOOD PRESSURE DECREASED [None]
  - HYPERPHAGIA [None]
  - FACIAL PAIN [None]
  - PALPITATIONS [None]
